FAERS Safety Report 8033551-1 (Version None)
Quarter: 2012Q1

REPORT INFORMATION
  Report Type: 
  Country: None (occurrence: None)
  Receive Date: 20120110
  Receipt Date: 20120106
  Transmission Date: 20120608
  Serious: Yes (Life-Threatening, Hospitalization)
  Sender: FDA-Public Use
  Company Number: FR-ELI_LILLY_AND_COMPANY-FR201201001614

PATIENT
  Sex: Female

DRUGS (13)
  1. POTASSIUM CHLORIDE [Concomitant]
  2. MORPHINE SULFATE [Concomitant]
  3. VENTOLIN                                /SCH/ [Concomitant]
  4. ALIMTA [Suspect]
     Indication: LUNG CANCER METASTATIC
     Dosage: UNK
     Dates: start: 20110811, end: 20110811
  5. PRIMPERAN TAB [Concomitant]
  6. FLUTICASONE PROPIONATE/SALMETEROL [Concomitant]
  7. CITALOPRAM HYDROBROMIDE [Concomitant]
  8. AMITRIPTYLINE HCL [Concomitant]
  9. KEPPRA [Concomitant]
  10. PREDNISONE TAB [Concomitant]
  11. ACETAMINOPHEN [Concomitant]
  12. POLYETHYLENE GLYCOL [Concomitant]
  13. LYRICA [Concomitant]

REACTIONS (3)
  - PNEUMOTHORAX [None]
  - LARGE INTESTINE PERFORATION [None]
  - DIVERTICULUM INTESTINAL [None]
